FAERS Safety Report 10537684 (Version 1)
Quarter: 2014Q4

REPORT INFORMATION
  Report Type: Spontaneous
  Country: IT (occurrence: None)
  Receive Date: 20141021
  Receipt Date: 20141021
  Transmission Date: 20150529
  Serious: Yes (Hospitalization)
  Sender: FDA-Public Use
  Company Number: FK201404177

PATIENT
  Age: 76 Year
  Sex: Male

DRUGS (9)
  1. PIPERACILLINA E TAZOBACTAM KABI [Suspect]
     Active Substance: PIPERACILLIN SODIUM\TAZOBACTAM SODIUM
     Indication: PRODUCT USED FOR UNKNOWN INDICATION
     Dosage: 1 IN 1 D, IV DRIP
     Route: 042
     Dates: start: 20140729, end: 20141002
  2. GLAZIDIM [Suspect]
     Active Substance: CEFTAZIDIME
     Indication: PRODUCT USED FOR UNKNOWN INDICATION
     Dosage: 1 DOSAGE FORMS, 1 IN 1 D, IV.
     Dates: start: 20140920, end: 20140926
  3. TORVAST (ASTORVASTATIN CALCIUM) [Concomitant]
  4. LEVOFLOXACIN. [Suspect]
     Active Substance: LEVOFLOXACIN
     Indication: PRODUCT USED FOR UNKNOWN INDICATION
     Dosage: 2 DOSAGE FORMS, 1 IN 1 D,
     Route: 041
     Dates: start: 20140920, end: 20140926
  5. ALIFLUS (SERETIDE) [Concomitant]
  6. SPIRIVA (TIOTROPIUM BROMIDE) [Concomitant]
  7. NEXIUM [Concomitant]
     Active Substance: ESOMEPRAZOLE MAGNESIUM
  8. COUMADIN [Suspect]
     Active Substance: WARFARIN SODIUM
     Indication: PRODUCT USED FOR UNKNOWN INDICATION
     Dosage: AS NEEDED
     Route: 048
     Dates: start: 20100101, end: 20141003
  9. CORDARONE (AMIODARONE HYDROCHLORIDE) [Concomitant]

REACTIONS (2)
  - Hypercoagulation [None]
  - Drug interaction [None]

NARRATIVE: CASE EVENT DATE: 20141003
